FAERS Safety Report 7476631-1 (Version None)
Quarter: 2011Q2

REPORT INFORMATION
  Report Type: 
  Country: None (occurrence: None)
  Receive Date: 20110510
  Receipt Date: 20110510
  Transmission Date: 20111010
  Serious: Yes (Life-Threatening, Hospitalization)
  Sender: FDA-Public Use
  Company Number: None

PATIENT
  Age: 52 Year
  Sex: Male
  Weight: 99.7913 kg

DRUGS (1)
  1. CYMBALTA [Suspect]
     Indication: DEPRESSION
     Dosage: 60 MG 1 PO
     Route: 048
     Dates: start: 20100210, end: 20100501

REACTIONS (7)
  - AMNESIA [None]
  - DRUG WITHDRAWAL SYNDROME [None]
  - MUSCULAR WEAKNESS [None]
  - DIZZINESS [None]
  - FALL [None]
  - BALANCE DISORDER [None]
  - SUICIDAL IDEATION [None]
